FAERS Safety Report 5901374-2 (Version None)
Quarter: 2008Q3

REPORT INFORMATION
  Report Type: 
  Country: None (occurrence: None)
  Receive Date: 20080925
  Receipt Date: 20080909
  Transmission Date: 20090109
  Serious: Yes (Other)
  Sender: FDA-Public Use
  Company Number: JPI-P-004026

PATIENT
  Age: 13 Year
  Sex: Male

DRUGS (6)
  1. LUVOX CR [Suspect]
     Indication: DRUG USE FOR UNKNOWN INDICATION
     Dosage: 50 MG (25 MG, 2 IN 1 D), ORAL
     Route: 048
     Dates: start: 20080422
  2. ZOLPIDEM TARTRATE [Suspect]
     Indication: DRUG USE FOR UNKNOWN INDICATION
     Dosage: (5 MG, 1 D), ORAL
     Route: 048
     Dates: start: 20080611, end: 20080611
  3. MOSAPRIDE CITRATE           (MOSAPRIDE CITRATE) [Suspect]
     Indication: DRUG USE FOR UNKNOWN INDICATION
     Dosage: (10 MG, 1 D), ORAL
     Route: 048
     Dates: start: 20080422
  4. FLUTICASONE PROPIONATE [Suspect]
     Indication: DRUG USE FOR UNKNOWN INDICATION
     Dosage: (200 MCG, 1 D), RESPIRATORY
     Route: 055
     Dates: start: 20040303
  5. RISPERIDONE        (RESPERIDONE) [Concomitant]
  6. AMBROXOL HYDROCHLORIDE             (AMBROXOL) [Concomitant]

REACTIONS (11)
  - ABASIA [None]
  - AGGRESSION [None]
  - AGITATION [None]
  - ANTEROGRADE AMNESIA [None]
  - DISINHIBITION [None]
  - DIZZINESS [None]
  - EXCORIATION [None]
  - FEAR [None]
  - HOSTILITY [None]
  - INTENTIONAL SELF-INJURY [None]
  - WOUND [None]
